FAERS Safety Report 16685405 (Version 1)
Quarter: 2019Q3

REPORT INFORMATION
  Report Type: Spontaneous
  Country: GB (occurrence: GB)
  Receive Date: 20190809
  Receipt Date: 20190809
  Transmission Date: 20191004
  Serious: Yes (Hospitalization, Other)
  Sender: FDA-Public Use
  Company Number: GB-SA-2019SA206726

PATIENT
  Age: 92 Year
  Sex: Male

DRUGS (9)
  1. CLOPIDOGREL BISULFATE. [Suspect]
     Active Substance: CLOPIDOGREL BISULFATE
     Dosage: 75 MG, QD (IN THE MORNING)
     Route: 048
  2. LANSOPRAZOLE. [Concomitant]
     Active Substance: LANSOPRAZOLE
     Dosage: 30 MG, QD
     Route: 048
  3. FUROSEMIDE. [Concomitant]
     Active Substance: FUROSEMIDE
     Dosage: 80 MG, QD
     Route: 048
  4. SIMVASTATIN. [Concomitant]
     Active Substance: SIMVASTATIN
     Dosage: AT NIGHT
     Route: 048
  5. LOSARTAN. [Concomitant]
     Active Substance: LOSARTAN
     Dosage: 75 MG, QD
     Route: 048
  6. DIGOXIN. [Concomitant]
     Active Substance: DIGOXIN
     Dosage: 125 UG, QD
     Route: 048
  7. ENOXAPARIN SODIUM. [Suspect]
     Active Substance: ENOXAPARIN SODIUM
     Dosage: 40MG/0.4ML
     Route: 058
  8. FOSTAIR [Concomitant]
     Active Substance: BECLOMETHASONE\FORMOTEROL
     Dosage: 4 DF, QD (100MICROGRAMS/DOSE / 6MICROGRAMS/DOSE DRY POWDER INH)
     Route: 065
  9. SALBUTAMOL [Concomitant]
     Active Substance: ALBUTEROL
     Dosage: 200 UG, QID (PUFFS FOUR TIMES A DAY)

REACTIONS (3)
  - Loss of consciousness [Unknown]
  - Epistaxis [Recovered/Resolved]
  - Haematemesis [Unknown]
